FAERS Safety Report 4879746-7 (Version None)
Quarter: 2006Q1

REPORT INFORMATION
  Report Type: 
  Country: None (occurrence: None)
  Receive Date: 20060113
  Receipt Date: 20060110
  Transmission Date: 20060701
  Serious: Yes (Other)
  Sender: FDA-Public Use
  Company Number: US-GLAXOSMITHKLINE-A0588574A

PATIENT
  Age: 35 Year
  Sex: Female

DRUGS (7)
  1. ADVAIR DISKUS 250/50 [Suspect]
     Indication: DRUG USE FOR UNKNOWN INDICATION
     Dosage: 1PUFF TWICE PER DAY
     Route: 055
     Dates: start: 20050701, end: 20051229
  2. ANTIBIOTICS [Concomitant]
  3. ALLEGRA [Concomitant]
  4. ZYRTEC [Concomitant]
  5. LOESTRIN 24 [Concomitant]
  6. RHINOCORT [Concomitant]
  7. PROLEX D [Concomitant]

REACTIONS (11)
  - AMENORRHOEA [None]
  - ARTHRALGIA [None]
  - CANDIDIASIS [None]
  - CHRONIC SINUSITIS [None]
  - FATIGUE [None]
  - INSOMNIA [None]
  - MIGRAINE [None]
  - MOUTH ULCERATION [None]
  - NIGHTMARE [None]
  - UPPER RESPIRATORY TRACT INFECTION [None]
  - VIRAL INFECTION [None]
